FAERS Safety Report 12843230 (Version 1)
Quarter: 2016Q4

REPORT INFORMATION
  Report Type: Spontaneous
  Country: FI (occurrence: FI)
  Receive Date: 20161013
  Receipt Date: 20161013
  Transmission Date: 20170207
  Serious: Yes (Other)
  Sender: FDA-Public Use
  Company Number: FI-GLAXOSMITHKLINE-FI2016GSK149210

PATIENT
  Age: 23 Year
  Sex: Male

DRUGS (10)
  1. ABILIFY [Concomitant]
     Active Substance: ARIPIPRAZOLE
     Indication: SCHIZOPHRENIA
  2. PARA-TABS [Concomitant]
     Active Substance: ACETAMINOPHEN
     Indication: PAIN
  3. NICORETTE [Concomitant]
     Active Substance: NICOTINE
     Indication: NICOTINE DEPENDENCE
  4. AQUALAN [Concomitant]
  5. BISOPROLOL [Concomitant]
     Active Substance: BISOPROLOL
     Indication: TACHYCARDIA
  6. LEPONEX [Suspect]
     Active Substance: CLOZAPINE
     Indication: PRODUCT USED FOR UNKNOWN INDICATION
     Dosage: 500 MG, 1D
     Route: 048
     Dates: start: 20160715, end: 20160926
  7. METFOREM [Concomitant]
     Active Substance: METFORMIN HYDROCHLORIDE
     Indication: DIABETES MELLITUS
  8. SCOPODERM/TRANSDERM-SCOP [Suspect]
     Active Substance: SCOPOLAMINE HYDROBROMIDE
     Indication: SALIVARY HYPERSECRETION
     Dosage: UNK
     Dates: start: 20160718, end: 20160926
  9. PEGORION [Concomitant]
     Indication: CONSTIPATION
  10. DIAPAM [Concomitant]
     Active Substance: DIAZEPAM
     Indication: ANXIETY

REACTIONS (3)
  - Off label use [Unknown]
  - Neutropenia [Unknown]
  - Granulocytopenia [Unknown]

NARRATIVE: CASE EVENT DATE: 20160718
